FAERS Safety Report 9215390 (Version 5)
Quarter: 2013Q2

REPORT INFORMATION
  Report Type: Spontaneous
  Country: US (occurrence: US)
  Receive Date: 20130405
  Receipt Date: 20130610
  Transmission Date: 20140414
  Serious: No
  Sender: FDA-Public Use
  Company Number: US-PFIZER INC-2013108338

PATIENT
  Age: 75 Year
  Sex: Female
  Weight: 58.96 kg

DRUGS (2)
  1. LYRICA [Suspect]
     Indication: FIBROMYALGIA
     Dosage: 150 MG, 2X/DAY
  2. LYRICA [Suspect]
     Indication: PAIN

REACTIONS (2)
  - Pain [Recovering/Resolving]
  - Skin burning sensation [Recovering/Resolving]
